FAERS Safety Report 10037063 (Version 2)
Quarter: 2014Q1

REPORT INFORMATION
  Report Type: Spontaneous
  Country: GB (occurrence: GB)
  Receive Date: 20140326
  Receipt Date: 20140326
  Transmission Date: 20141002
  Serious: Yes (Hospitalization)
  Sender: FDA-Public Use
  Company Number: GB-BRISTOL-MYERS SQUIBB COMPANY-19932532

PATIENT
  Age: 75 Year
  Sex: Male

DRUGS (13)
  1. DASATINIB [Suspect]
     Indication: CHRONIC MYELOID LEUKAEMIA
     Dosage: DOSE REDUCED TO 20MG:20JUL2013-28NOV2013 ?INCREASED TO 50MG:28NOV2013-06DEC2013?RESTARTED 20 MG
     Route: 048
     Dates: start: 20130718
  2. SENNA [Concomitant]
  3. ASPIRIN [Concomitant]
  4. BECLOMETASONE [Concomitant]
  5. CODEINE [Concomitant]
  6. DOCUSATE [Concomitant]
  7. DOXAZOSIN [Concomitant]
  8. FUROSEMIDE [Concomitant]
  9. MORPHINE [Concomitant]
  10. NEFOPAM HCL [Concomitant]
  11. NIFEDIPINE [Concomitant]
  12. PARACETAMOL [Concomitant]
  13. SALBUTAMOL [Concomitant]

REACTIONS (7)
  - Cardiac failure congestive [Unknown]
  - Pulmonary oedema [Unknown]
  - Dyspnoea [Unknown]
  - Lower respiratory tract infection [Unknown]
  - Renal failure acute [Unknown]
  - Dehydration [Unknown]
  - Confusional state [Unknown]
